FAERS Safety Report 11115393 (Version 3)
Quarter: 2015Q2

REPORT INFORMATION
  Report Type: Spontaneous
  Country: JP (occurrence: JP)
  Receive Date: 20150515
  Receipt Date: 20150615
  Transmission Date: 20150821
  Serious: Yes (Other)
  Sender: FDA-Public Use
  Company Number: JP-SA-2015SA062322

PATIENT
  Age: 78 Year
  Sex: Female

DRUGS (12)
  1. FLUTICASONE PROPIONATE. [Concomitant]
     Active Substance: FLUTICASONE PROPIONATE
     Indication: RHINITIS
     Route: 045
     Dates: start: 20150410, end: 20150415
  2. RIZE [Concomitant]
     Active Substance: CLOTIAZEPAM
     Indication: NEUROSIS
     Route: 065
     Dates: start: 200710
  3. JUVELA N [Concomitant]
     Active Substance: TOCOPHERYL NICOTINATE, D-.ALPHA.
     Indication: HYPERLIPIDAEMIA
     Route: 065
     Dates: start: 200703
  4. ZETIA [Concomitant]
     Active Substance: EZETIMIBE
     Indication: HYPERLIPIDAEMIA
     Route: 065
     Dates: start: 201110
  5. DELLEGRA [Suspect]
     Active Substance: FEXOFENADINE HYDROCHLORIDE\PSEUDOEPHEDRINE HYDROCHLORIDE
     Indication: RHINITIS
     Route: 048
     Dates: start: 20150410, end: 20150415
  6. KLARICID [Concomitant]
     Active Substance: CLARITHROMYCIN
     Indication: RHINITIS
     Route: 065
     Dates: start: 20150410, end: 20150415
  7. PREDNISOLONE. [Concomitant]
     Active Substance: PREDNISOLONE
     Indication: RHINITIS
     Route: 065
     Dates: start: 20150410, end: 20150415
  8. THEOLONG [Concomitant]
     Active Substance: THEOPHYLLINE ANHYDROUS
     Indication: ASTHMA
     Route: 065
     Dates: start: 200301
  9. MILMAG [Concomitant]
     Active Substance: MAGNESIUM HYDROXIDE
     Indication: CONSTIPATION
     Route: 065
     Dates: start: 201401
  10. PROTECADIN [Concomitant]
     Active Substance: LAFUTIDINE
     Indication: RHINITIS
     Route: 065
     Dates: start: 20150410, end: 20150415
  11. ALESION [Concomitant]
     Active Substance: EPINASTINE HYDROCHLORIDE
     Indication: ASTHMA
     Route: 065
     Dates: start: 200301
  12. LAMISIL [Concomitant]
     Active Substance: TERBINAFINE HYDROCHLORIDE
     Indication: ONYCHOMYCOSIS
     Route: 065
     Dates: start: 201403

REACTIONS (4)
  - Drug-induced liver injury [Recovering/Resolving]
  - Hepatomegaly [Recovering/Resolving]
  - Asthenia [Recovering/Resolving]
  - Malaise [Recovering/Resolving]

NARRATIVE: CASE EVENT DATE: 20150411
